FAERS Safety Report 26019645 (Version 1)
Quarter: 2025Q4

REPORT INFORMATION
  Report Type: Spontaneous
  Country: EU (occurrence: EU)
  Receive Date: 20251110
  Receipt Date: 20251110
  Transmission Date: 20260118
  Serious: Yes (Hospitalization)
  Sender: JOHNSON AND JOHNSON
  Company Number: None

PATIENT
  Age: 79 Year
  Sex: Male
  Weight: 71.5 kg

DRUGS (5)
  1. DARZALEX FASPRO [Suspect]
     Active Substance: DARATUMUMAB\HYALURONIDASE-FIHJ
     Indication: Plasma cell myeloma
     Dosage: 1800 MG PER COURSE (C1J1 ON 17/07/2025, THEN C2J1 ON 25/09/2025, C2J8 ON 02/10/2025 AND C2J15 ON 09/
     Route: 042
     Dates: start: 20250717, end: 20251009
  2. ZOMETA [Suspect]
     Active Substance: ZOLEDRONIC ACID
     Indication: Pathological fracture prophylaxis
     Dosage: 1 INJECTION IV TOUS LES MOIS
     Route: 042
     Dates: start: 20250220, end: 20251003
  3. LENALIDOMIDE [Suspect]
     Active Substance: LENALIDOMIDE
     Indication: Plasma cell myeloma
     Dosage: 25 MG LE SOIR 21 JOURS/28 PAR MOIS
     Route: 048
     Dates: start: 20250717, end: 20251014
  4. DEXAMETHASONE [Suspect]
     Active Substance: DEXAMETHASONE
     Indication: Plasma cell myeloma
     Dosage: 20 MG/INJECTION IV (LE 17/07/2025, 25/09/2025, 02/10/2025 ET 09/10/2025)
     Route: 042
     Dates: start: 20250717, end: 20251009
  5. METFORMIN HYDROCHLORIDE [Concomitant]
     Active Substance: METFORMIN HYDROCHLORIDE
     Indication: Type 2 diabetes mellitus
     Dosage: 1000 MG MATIN, MIDI ET SOIR
     Route: 048
     Dates: end: 202510

REACTIONS (1)
  - Acute kidney injury [Recovering/Resolving]

NARRATIVE: CASE EVENT DATE: 20251009
